FAERS Safety Report 18762120 (Version 2)
Quarter: 2021Q2

REPORT INFORMATION
  Report Type: Report from Study
  Country: AR (occurrence: AR)
  Receive Date: 20210120
  Receipt Date: 20210522
  Transmission Date: 20210717
  Serious: Yes (Hospitalization, Other)
  Sender: FDA-Public Use
  Company Number: NVSC2019AR043934

PATIENT
  Age: 61 Year
  Sex: Female

DRUGS (1)
  1. TASIGNA [Suspect]
     Active Substance: NILOTINIB
     Indication: CHRONIC MYELOID LEUKAEMIA
     Dosage: 400 MG, BID
     Route: 048
     Dates: start: 20070101

REACTIONS (10)
  - Chronic obstructive pulmonary disease [Unknown]
  - Malignant neoplasm progression [Unknown]
  - Platelet count increased [Unknown]
  - Memory impairment [Not Recovered/Not Resolved]
  - Asthma [Unknown]
  - Chronic myeloid leukaemia [Not Recovered/Not Resolved]
  - Full blood count increased [Not Recovered/Not Resolved]
  - Immune system disorder [Unknown]
  - Depression [Unknown]
  - Confusional state [Not Recovered/Not Resolved]

NARRATIVE: CASE EVENT DATE: 20191120
